FAERS Safety Report 13998715 (Version 1)
Quarter: 2017Q3

REPORT INFORMATION
  Report Type: Spontaneous
  Country: US (occurrence: None)
  Receive Date: 20170922
  Receipt Date: 20170922
  Transmission Date: 20171128
  Serious: Yes (Death, Hospitalization)
  Sender: FDA-Public Use
  Company Number: None

PATIENT
  Age: 4 Year
  Sex: Female
  Weight: 12.1 kg

DRUGS (8)
  1. METHOTREXATE. [Suspect]
     Active Substance: METHOTREXATE
     Dates: end: 20131202
  2. SULFAMETHOXAZOLE/TRIMETHOPRIM [Concomitant]
     Active Substance: SULFAMETHOXAZOLE\TRIMETHOPRIM
  3. ALBUTEROL. [Concomitant]
     Active Substance: ALBUTEROL
  4. MERCAPTOPURINE. [Suspect]
     Active Substance: MERCAPTOPURINE
     Dates: end: 20140202
  5. POLYETHYLENE GLYCOL [Concomitant]
     Active Substance: POLYETHYLENE GLYCOLS
  6. VINCRISTINE SULFATE. [Suspect]
     Active Substance: VINCRISTINE SULFATE
     Dates: end: 20140203
  7. LANSOPRAZOLE. [Concomitant]
     Active Substance: LANSOPRAZOLE
  8. DEXAMETHASONE. [Suspect]
     Active Substance: DEXAMETHASONE
     Dates: end: 20140202

REACTIONS (5)
  - Respiratory distress [None]
  - Neoplasm [None]
  - Upper respiratory tract infection [None]
  - Vomiting [None]
  - Cardio-respiratory arrest [None]

NARRATIVE: CASE EVENT DATE: 20140208
